FAERS Safety Report 5341726-5 (Version None)
Quarter: 2007Q2

REPORT INFORMATION
  Report Type: 
  Country: None (occurrence: None)
  Receive Date: 20070529
  Receipt Date: 20070529
  Transmission Date: 20071010
  Serious: Yes (Other)
  Sender: FDA-Public Use
  Company Number: None

PATIENT
  Age: 32 Year
  Sex: Male
  Weight: 81.6475 kg

DRUGS (1)
  1. LYRICA [Suspect]
     Indication: COMPLEX REGIONAL PAIN SYNDROME
     Dates: start: 20060707, end: 20070527

REACTIONS (5)
  - ANGER [None]
  - CONFUSIONAL STATE [None]
  - DIZZINESS [None]
  - THINKING ABNORMAL [None]
  - WEIGHT INCREASED [None]
